FAERS Safety Report 9835032 (Version 1)
Quarter: 2014Q1

REPORT INFORMATION
  Report Type: Spontaneous
  Country: US (occurrence: US)
  Receive Date: 20140122
  Receipt Date: 20140122
  Transmission Date: 20141002
  Serious: No
  Sender: FDA-Public Use
  Company Number: US-ACORDA-ACO_37172_2013

PATIENT
  Sex: Female

DRUGS (16)
  1. ZANAFLEX TABLETS [Suspect]
     Indication: PRODUCT USED FOR UNKNOWN INDICATION
     Dosage: UNK, TID
  2. NEURONTIN [Suspect]
     Indication: FIBROMYALGIA
     Dosage: 400 MG, FOUR TIMES A DAY
     Dates: start: 1997
  3. CELEBREX [Suspect]
     Indication: ARTHRITIS
     Dosage: 200 MG, BID
  4. ATENOLOL [Concomitant]
     Indication: PRODUCT USED FOR UNKNOWN INDICATION
     Dosage: UNK
  5. VOLTAREN [Concomitant]
     Indication: ARTHRITIS
     Dosage: UNK
  6. AMARYL [Concomitant]
     Indication: PRODUCT USED FOR UNKNOWN INDICATION
     Dosage: UNK
  7. VICODIN [Concomitant]
     Indication: PRODUCT USED FOR UNKNOWN INDICATION
     Dosage: UNK, PRN
  8. MACROBID [Concomitant]
     Indication: PRODUCT USED FOR UNKNOWN INDICATION
     Dosage: UNK
  9. WELLBUTRIN [Concomitant]
     Indication: PRODUCT USED FOR UNKNOWN INDICATION
     Dosage: UNK
  10. SKELAXIN [Concomitant]
     Indication: MUSCLE RELAXANT THERAPY
     Dosage: UNK
  11. DITROPAN [Concomitant]
     Indication: PRODUCT USED FOR UNKNOWN INDICATION
     Dosage: UNK
  12. LIPID MODIFYING AGENTS [Concomitant]
     Indication: BLOOD CHOLESTEROL INCREASED
  13. ROBAXIN [Concomitant]
     Indication: ARTHRITIS
  14. PRAVACHOL [Concomitant]
     Indication: PRODUCT USED FOR UNKNOWN INDICATION
     Dosage: UNK
  15. PROVIGIL [Concomitant]
     Indication: PRODUCT USED FOR UNKNOWN INDICATION
     Dosage: UNK
  16. PREDNISONE [Concomitant]
     Indication: PRODUCT USED FOR UNKNOWN INDICATION
     Dosage: UNK

REACTIONS (6)
  - Withdrawal syndrome [Recovered/Resolved]
  - Hypersomnia [Not Recovered/Not Resolved]
  - Vitamin D decreased [Unknown]
  - Restlessness [Recovered/Resolved]
  - Hyperhidrosis [Recovered/Resolved]
  - Somnolence [Not Recovered/Not Resolved]
